FAERS Safety Report 12133679 (Version 2)
Quarter: 2016Q2

REPORT INFORMATION
  Report Type: Report from Study
  Country: AU (occurrence: AU)
  Receive Date: 20160301
  Receipt Date: 20160401
  Transmission Date: 20160815
  Serious: Yes (Death, Other)
  Sender: FDA-Public Use
  Company Number: AU-AMGEN-AUSNI2016025099

PATIENT
  Age: 73 Year
  Sex: Female
  Weight: 90 kg

DRUGS (6)
  1. CARFILZOMIB [Suspect]
     Active Substance: CARFILZOMIB
     Indication: PLASMA CELL MYELOMA
     Dosage: 50 MG, QWK
     Route: 058
     Dates: start: 20160117, end: 20160210
  2. MELPHALAN [Concomitant]
     Active Substance: MELPHALAN
     Dosage: UNK
  3. THALIDOMIDE [Concomitant]
     Active Substance: THALIDOMIDE
     Dosage: UNK
  4. VELCADE [Concomitant]
     Active Substance: BORTEZOMIB
     Dosage: UNK
  5. PREDNISONE. [Concomitant]
     Active Substance: PREDNISONE
     Dosage: UNK
  6. LENALIDOMIDE [Concomitant]
     Active Substance: LENALIDOMIDE
     Dosage: UNK

REACTIONS (1)
  - Plasma cell myeloma [Fatal]

NARRATIVE: CASE EVENT DATE: 201602
